FAERS Safety Report 6856857-8 (Version None)
Quarter: 2010Q3

REPORT INFORMATION
  Report Type: 
  Country: None (occurrence: None)
  Receive Date: 20100719
  Receipt Date: 20100709
  Transmission Date: 20110219
  Serious: Yes (Hospitalization)
  Sender: FDA-Public Use
  Company Number: US-ABBOTT-10P-163-0656665-00

PATIENT
  Sex: Female
  Weight: 68.554 kg

DRUGS (12)
  1. HUMIRA [Suspect]
     Indication: RHEUMATOID ARTHRITIS
     Dates: start: 20090101
  2. RELAFEN [Concomitant]
     Indication: RHEUMATOID ARTHRITIS
  3. IMURAN [Concomitant]
     Indication: RHEUMATOID ARTHRITIS
  4. ROBAXIN [Concomitant]
     Indication: RHEUMATOID ARTHRITIS
  5. TOPROL-XL [Concomitant]
     Indication: HYPERTENSION
  6. TOPAMAX [Concomitant]
     Indication: CONVULSION
  7. TRILEPTAL [Concomitant]
     Indication: CONVULSION
  8. RESTORIL [Concomitant]
     Indication: INSOMNIA
  9. MS CONTIN [Concomitant]
     Indication: PAIN
  10. MORPHINE SULFATE [Concomitant]
     Indication: PAIN
  11. COLACE [Concomitant]
     Indication: CONSTIPATION PROPHYLAXIS
  12. MIRALAX [Concomitant]
     Indication: CONSTIPATION

REACTIONS (8)
  - BLOOD POTASSIUM DECREASED [None]
  - EAR INFECTION [None]
  - FALL [None]
  - INTESTINAL OBSTRUCTION [None]
  - OROPHARYNGEAL PAIN [None]
  - PYREXIA [None]
  - RENAL FAILURE [None]
  - SINUSITIS [None]
